FAERS Safety Report 12589084 (Version 1)
Quarter: 2016Q3

REPORT INFORMATION
  Report Type: Spontaneous
  Country: US (occurrence: US)
  Receive Date: 20160725
  Receipt Date: 20160725
  Transmission Date: 20161109
  Serious: No
  Sender: FDA-Public Use
  Company Number: US-JNJFOC-20160705011

PATIENT
  Age: 66 Year
  Sex: Male
  Weight: 131.54 kg

DRUGS (3)
  1. ZYRTEC [Suspect]
     Active Substance: CETIRIZINE HYDROCHLORIDE
     Route: 048
  2. ZYRTEC [Suspect]
     Active Substance: CETIRIZINE HYDROCHLORIDE
     Indication: ALLERGIC SINUSITIS
     Dosage: 1-2 TABLETS FOR A FEW WEEKS
     Route: 048
     Dates: end: 20160705
  3. METOPROLOL. [Concomitant]
     Active Substance: METOPROLOL
     Indication: HYPERTENSION
     Dosage: 1 YEAR
     Route: 065

REACTIONS (3)
  - Drug administration error [Unknown]
  - Overdose [Unknown]
  - Drug ineffective [Unknown]
